FAERS Safety Report 5960389-9 (Version None)
Quarter: 2008Q4

REPORT INFORMATION
  Report Type: 
  Country: None (occurrence: None)
  Receive Date: 20081120
  Receipt Date: 20081105
  Transmission Date: 20090506
  Serious: Yes (Hospitalization)
  Sender: FDA-Public Use
  Company Number: FR-GENENTECH-271540

PATIENT
  Sex: Male

DRUGS (10)
  1. MABTHERA [Suspect]
     Indication: B-CELL LYMPHOMA
     Dosage: 800 MG, Q3W
     Route: 042
     Dates: start: 20080626
  2. DOXORUBICIN HCL [Suspect]
     Indication: B-CELL LYMPHOMA
     Dosage: 100 MG, Q3W
     Route: 042
     Dates: start: 20080626
  3. PREDNISONE TAB [Suspect]
     Indication: B-CELL LYMPHOMA
     Dosage: 80 MG, QDX5D/21DC
     Route: 042
     Dates: start: 20080626
  4. ONCOVIN [Suspect]
     Indication: B-CELL LYMPHOMA
     Dosage: 2 MG, Q3W
     Route: 042
     Dates: start: 20080626
  5. ENDOXAN [Suspect]
     Indication: B-CELL LYMPHOMA
     Dosage: 1500 MG, Q3W
     Route: 042
     Dates: start: 20080626
  6. AMARYL [Concomitant]
     Indication: TYPE 2 DIABETES MELLITUS
  7. PLAVIX [Concomitant]
     Indication: ARTERIAL DISORDER
  8. CARDIOXANE [Concomitant]
     Indication: DRUG USE FOR UNKNOWN INDICATION
  9. NEULASTA [Concomitant]
     Indication: DRUG USE FOR UNKNOWN INDICATION
  10. EPREX [Concomitant]
     Indication: DRUG USE FOR UNKNOWN INDICATION

REACTIONS (1)
  - PROGRESSIVE MULTIFOCAL LEUKOENCEPHALOPATHY [None]
